FAERS Safety Report 8839662 (Version 1)
Quarter: 2012Q4

REPORT INFORMATION
  Report Type: Spontaneous
  Country: FR (occurrence: None)
  Receive Date: 20121011
  Receipt Date: 20121011
  Transmission Date: 20130627
  Serious: Yes (Other)
  Sender: FDA-Public Use
  Company Number: 1443641

PATIENT
  Age: 61 Year
  Sex: Male

DRUGS (11)
  1. VINCRISTINE SULFATE [Suspect]
     Indication: ANGIOIMMUNOBLASTIC T-CELL LYMPHOMA
  2. CYCLOPHOSPHAMIDE [Suspect]
  3. PREDNISOLONE [Suspect]
  4. DOXORUBICIN [Suspect]
  5. METHOTREXATE [Suspect]
  6. CYTARABINE [Suspect]
  7. ETOPOSIDE [Suspect]
  8. DEXAMETHASONE [Suspect]
  9. PURINETHOL [Suspect]
  10. PEGINTERFERON ALFA [Suspect]
  11. PROCARBAZINE [Suspect]

REACTIONS (2)
  - Hodgkin^s disease [None]
  - Haematoma [None]
